FAERS Safety Report 15961690 (Version 1)
Quarter: 2019Q1

REPORT INFORMATION
  Report Type: Spontaneous
  Country: US (occurrence: US)
  Receive Date: 20190214
  Receipt Date: 20190214
  Transmission Date: 20190417
  Serious: Yes (Other)
  Sender: FDA-Public Use
  Company Number: None

PATIENT
  Age: 57 Year
  Sex: Male
  Weight: 99 kg

DRUGS (7)
  1. VITAMIN C [Concomitant]
     Active Substance: ASCORBIC ACID
  2. VITAMIN E [Concomitant]
     Active Substance: .ALPHA.-TOCOPHEROL
  3. MULTI VITAMIN [Concomitant]
     Active Substance: VITAMINS
  4. VITAMIN D3 [Concomitant]
     Active Substance: CHOLECALCIFEROL
  5. VITAMIN B-COMPLEX [Concomitant]
     Active Substance: DEXPANTHENOL\NIACINAMIDE\PYRIDOXINE HYDROCHLORIDE\RIBOFLAVIN 5^-PHOSPHATE SODIUM\THIAMINE HYDROCHLORIDE
  6. LOSARTAN POT TAB 100 MG [Suspect]
     Active Substance: LOSARTAN POTASSIUM
     Indication: HYPERTENSION
     Dosage: ?          QUANTITY:1 TABLET(S);?
     Route: 048
     Dates: start: 20140922, end: 20190214
  7. BAYER ASPIRIN [Concomitant]
     Active Substance: ASPIRIN

REACTIONS (12)
  - Anxiety [None]
  - Chest discomfort [None]
  - Feeling of despair [None]
  - Lacrimation increased [None]
  - Parosmia [None]
  - Depression [None]
  - Arthralgia [None]
  - Partner stress [None]
  - Panic attack [None]
  - Pain in extremity [None]
  - Nephropathy [None]
  - Cough [None]

NARRATIVE: CASE EVENT DATE: 20181214
